FAERS Safety Report 22585513 (Version 1)
Quarter: 2023Q2

REPORT INFORMATION
  Report Type: Report from Study
  Country: EG (occurrence: EG)
  Receive Date: 20230610
  Receipt Date: 20230610
  Transmission Date: 20230721
  Serious: Yes (Other)
  Sender: FDA-Public Use
  Company Number: EG-002147023-NVSC2023EG130505

PATIENT
  Age: 13 Year
  Sex: Female

DRUGS (2)
  1. OMNITROPE [Suspect]
     Active Substance: SOMATROPIN
     Indication: Growth hormone deficiency
     Dosage: 1.6 MG, QD (PER DAY)
     Route: 058
     Dates: start: 20210418, end: 20230602
  2. ALFACALCIDOL [Concomitant]
     Active Substance: ALFACALCIDOL
     Indication: Hypoparathyroidism
     Dosage: 14 DRP, BID (START DATE: SINCE SHE WAS 1 YEAR AND 11 MONTHS OLD)
     Route: 065

REACTIONS (6)
  - Skin haemorrhage [Not Recovered/Not Resolved]
  - Drug dose omission by device [Not Recovered/Not Resolved]
  - Poor quality device used [Not Recovered/Not Resolved]
  - Expired device used [Recovered/Resolved]
  - Product preparation error [Recovered/Resolved]
  - Multiple use of single-use product [Recovered/Resolved]

NARRATIVE: CASE EVENT DATE: 20210418
